FAERS Safety Report 5923862-5 (Version None)
Quarter: 2008Q4

REPORT INFORMATION
  Report Type: 
  Country: None (occurrence: None)
  Receive Date: 20081020
  Receipt Date: 20081007
  Transmission Date: 20090506
  Serious: Yes (Death)
  Sender: FDA-Public Use
  Company Number: FI-ROCHE-574761

PATIENT
  Sex: Female

DRUGS (4)
  1. XELODA [Suspect]
     Indication: RECTAL CANCER
     Route: 048
     Dates: start: 20080605, end: 20080612
  2. ELOXATIN [Suspect]
     Indication: RECTAL CANCER
     Dosage: ROUTE: INTRAVENOUS INFUSION, MANUFACTURER SANOFI AVENTIS
     Route: 041
     Dates: start: 20080605, end: 20080605
  3. PROGYNOVA [Concomitant]
     Route: 048
     Dates: start: 19800101, end: 20080616
  4. ENOXAPARIN SODIUM [Concomitant]
     Indication: PULMONARY EMBOLISM
     Dates: start: 20080501

REACTIONS (8)
  - C-REACTIVE PROTEIN INCREASED [None]
  - CLOSTRIDIUM DIFFICILE COLITIS [None]
  - GASTROINTESTINAL HAEMORRHAGE [None]
  - MOUTH HAEMORRHAGE [None]
  - MUCOSAL INFLAMMATION [None]
  - PANCYTOPENIA [None]
  - PARAESTHESIA [None]
  - RASH [None]
